FAERS Safety Report 21040935 (Version 1)
Quarter: 2022Q3

REPORT INFORMATION
  Report Type: Report from Study
  Country: NL (occurrence: NL)
  Receive Date: 20220704
  Receipt Date: 20220704
  Transmission Date: 20221027
  Serious: Yes (Other)
  Sender: FDA-Public Use
  Company Number: NL-ABBVIE-22K-114-4440191-00

PATIENT
  Sex: Male

DRUGS (4)
  1. CARBIDOPA\LEVODOPA [Suspect]
     Active Substance: CARBIDOPA\LEVODOPA
     Indication: Parkinson^s disease
     Route: 050
     Dates: start: 20220411, end: 2022
  2. CARBIDOPA\LEVODOPA [Suspect]
     Active Substance: CARBIDOPA\LEVODOPA
     Dosage: MD: 13.0ML
     Route: 050
     Dates: start: 2022, end: 2022
  3. CARBIDOPA\LEVODOPA [Suspect]
     Active Substance: CARBIDOPA\LEVODOPA
     Dosage: MD: 13.0ML, CD: 4.5 ML/H, ED: 4.0 ML
     Route: 050
     Dates: start: 2022
  4. ROPINIROLE [Concomitant]
     Active Substance: ROPINIROLE
     Indication: Product used for unknown indication

REACTIONS (17)
  - Depressed level of consciousness [Not Recovered/Not Resolved]
  - Bowel movement irregularity [Recovered/Resolved]
  - Faeces hard [Not Recovered/Not Resolved]
  - Dyskinesia [Unknown]
  - Fibroma [Not Recovered/Not Resolved]
  - Restlessness [Not Recovered/Not Resolved]
  - Affective disorder [Unknown]
  - Anger [Unknown]
  - Nightmare [Unknown]
  - Cognitive disorder [Not Recovered/Not Resolved]
  - Hallucination [Not Recovered/Not Resolved]
  - Therapeutic product effect decreased [Not Recovered/Not Resolved]
  - Hyperkinesia [Not Recovered/Not Resolved]
  - On and off phenomenon [Recovering/Resolving]
  - On and off phenomenon [Not Recovered/Not Resolved]
  - Muscle rigidity [Unknown]
  - Confusional state [Unknown]

NARRATIVE: CASE EVENT DATE: 20220101
